FAERS Safety Report 4667485-7 (Version None)
Quarter: 2005Q2

REPORT INFORMATION
  Report Type: 
  Country: None (occurrence: None)
  Receive Date: 20050520
  Receipt Date: 20050510
  Transmission Date: 20051028
  Serious: Yes (Other)
  Sender: FDA-Public Use
  Company Number: 200514170GDDC

PATIENT
  Age: 64 Year
  Sex: Female
  Weight: 96 kg

DRUGS (6)
  1. GLIMEPIRIDE [Suspect]
     Indication: DIABETES MELLITUS NON-INSULIN-DEPENDENT
     Route: 048
     Dates: start: 20050308, end: 20050414
  2. ATENOLOL [Concomitant]
     Indication: BLOOD PRESSURE INCREASED
     Route: 048
     Dates: start: 19980401
  3. ATENOLOL [Concomitant]
     Indication: MYOCARDIAL ISCHAEMIA
     Route: 048
     Dates: start: 19980401
  4. ASPIRIN [Concomitant]
     Indication: MYOCARDIAL ISCHAEMIA
     Route: 048
     Dates: start: 19980401
  5. FRUSEMIDE [Concomitant]
     Route: 048
     Dates: start: 20030101
  6. ATORVASTATIN CALCIUM [Concomitant]
     Indication: MYOCARDIAL ISCHAEMIA
     Route: 048
     Dates: start: 20040101

REACTIONS (4)
  - DEPRESSED MOOD [None]
  - EMOTIONAL DISORDER [None]
  - PRESSURE OF SPEECH [None]
  - VISION BLURRED [None]
